FAERS Safety Report 7946611-8 (Version None)
Quarter: 2011Q4

REPORT INFORMATION
  Report Type: 
  Country: None (occurrence: None)
  Receive Date: 20111123
  Receipt Date: 20111110
  Transmission Date: 20120403
  Serious: Yes (Life-Threatening, Hospitalization, Other)
  Sender: FDA-Public Use
  Company Number: 1000025382

PATIENT
  Age: 89 Year
  Sex: Female
  Weight: 72 kg

DRUGS (5)
  1. FUROSEMIDE [Concomitant]
  2. CITALOPRAM HYDROBROMIDE [Suspect]
     Indication: ABNORMAL BEHAVIOUR
     Dosage: 30 MG (15 DROPS) (30 MG,1 IN 1 D),ORAL
     Route: 048
     Dates: start: 20071224, end: 20111014
  3. REMERON (MIRTAZAPINE) (DROPS (FOR ORAL USE)) (MIRTAZAPINE) [Concomitant]
  4. RIVOTRIL (CLONAZEPAM) (DROPS (FOR ORAL USE)) (CLONAZEPAM) [Concomitant]
  5. LISINOPRIL (LISINOPRIL) (TABLETS) (LISINOPRIL) [Concomitant]

REACTIONS (3)
  - CHOKING SENSATION [None]
  - VOMITING [None]
  - SPUTUM ABNORMAL [None]
